FAERS Safety Report 12712746 (Version 1)
Quarter: 2016Q3

REPORT INFORMATION
  Report Type: Spontaneous
  Country: US (occurrence: US)
  Receive Date: 20160902
  Receipt Date: 20160902
  Transmission Date: 20161109
  Serious: Yes (Other)
  Sender: FDA-Public Use
  Company Number: US-GLAXOSMITHKLINE-US2016GSK123862

PATIENT
  Sex: Female

DRUGS (1)
  1. VOLTAREN XR [Suspect]
     Active Substance: DICLOFENAC SODIUM
     Indication: ARTHRITIS
     Route: 048

REACTIONS (4)
  - Intervertebral disc operation [Unknown]
  - Knee arthroplasty [Unknown]
  - Limb operation [Unknown]
  - Shoulder operation [Unknown]
